FAERS Safety Report 6765407-6 (Version None)
Quarter: 2010Q2

REPORT INFORMATION
  Report Type: 
  Country: None (occurrence: None)
  Receive Date: 20100611
  Receipt Date: 20100601
  Transmission Date: 20101027
  Serious: Yes (Other)
  Sender: FDA-Public Use
  Company Number: US-JNJFOC-20100303228

PATIENT
  Sex: Female
  Weight: 101.15 kg

DRUGS (3)
  1. REMICADE [Suspect]
     Indication: RHEUMATOID ARTHRITIS
     Dosage: 1ST DOSE
     Route: 042
  2. REMICADE [Suspect]
     Dosage: 2ND DOSE
     Route: 042
  3. REMICADE [Suspect]
     Dosage: 3RD DOSE STOPPED, RESTARTED AND COMPLETED
     Route: 042

REACTIONS (4)
  - DYSPNOEA [None]
  - INFUSION RELATED REACTION [None]
  - INFUSION SITE EXTRAVASATION [None]
  - OXYGEN SATURATION DECREASED [None]
